FAERS Safety Report 10569168 (Version 2)
Quarter: 2014Q4

REPORT INFORMATION
  Report Type: Spontaneous
  Country: US (occurrence: US)
  Receive Date: 20141106
  Receipt Date: 20141106
  Transmission Date: 20150529
  Serious: Yes (Hospitalization, Other)
  Sender: FDA-Public Use
  Company Number: US-009507513-2010SP006052

PATIENT
  Sex: Female
  Weight: 117.94 kg

DRUGS (1)
  1. NUVARING [Suspect]
     Active Substance: ETHINYL ESTRADIOL\ETONOGESTREL
     Indication: CONTRACEPTION
     Dosage: 0.015 MG-0.120 MG, 1 EA Q4W
     Route: 067
     Dates: start: 20080428

REACTIONS (14)
  - Nephrolithiasis [Unknown]
  - Chest pain [Unknown]
  - Musculoskeletal pain [Unknown]
  - Pulmonary embolism [Recovered/Resolved]
  - Pleurisy [Unknown]
  - Dysuria [Unknown]
  - Fibrocystic breast disease [Unknown]
  - Kidney infection [Unknown]
  - Peripheral swelling [Unknown]
  - Dizziness [Unknown]
  - Back pain [Unknown]
  - Thrombophlebitis superficial [Unknown]
  - Dysmenorrhoea [Unknown]
  - Pain in extremity [Unknown]

NARRATIVE: CASE EVENT DATE: 20080904
